FAERS Safety Report 24361521 (Version 1)
Quarter: 2024Q3

REPORT INFORMATION
  Report Type: Spontaneous
  Country: RO (occurrence: RO)
  Receive Date: 20240925
  Receipt Date: 20240925
  Transmission Date: 20241016
  Serious: Yes (Death)
  Sender: ROCHE
  Company Number: RO-ROCHE-10000086558

PATIENT
  Age: 34 Year
  Sex: Female

DRUGS (3)
  1. BEVACIZUMAB [Suspect]
     Active Substance: BEVACIZUMAB
     Indication: Squamous cell carcinoma of the cervix
     Route: 065
     Dates: start: 20221005
  2. PACLITAXEL [Suspect]
     Active Substance: PACLITAXEL
     Indication: Squamous cell carcinoma of the cervix
     Route: 042
     Dates: start: 20220119
  3. CARBOPLATIN [Suspect]
     Active Substance: CARBOPLATIN
     Indication: Squamous cell carcinoma of the cervix
     Dosage: AUC5 (TOTAL DOSE 415 MG IV)
     Route: 042
     Dates: start: 20220119

REACTIONS (2)
  - Metastatic neoplasm [Fatal]
  - Disease progression [Fatal]

NARRATIVE: CASE EVENT DATE: 20230320
